FAERS Safety Report 11067693 (Version 25)
Quarter: 2024Q1

REPORT INFORMATION
  Report Type: Other
  Country: CA (occurrence: None)
  Receive Date: 20150427
  Receipt Date: 20240229
  Transmission Date: 20240410
  Serious: Yes (Hospitalization, Other)
  Sender: FDA-Public Use
  Company Number: CA-ROCHE-1563563

PATIENT
  Sex: Female

DRUGS (18)
  1. ERIVEDGE [Suspect]
     Active Substance: VISMODEGIB
     Indication: Basal cell carcinoma
     Route: 065
     Dates: start: 2017
  2. ERIVEDGE [Suspect]
     Active Substance: VISMODEGIB
     Route: 065
     Dates: start: 201707
  3. ERIVEDGE [Suspect]
     Active Substance: VISMODEGIB
     Route: 048
     Dates: start: 201504, end: 201510
  4. ERIVEDGE [Suspect]
     Active Substance: VISMODEGIB
     Route: 048
     Dates: start: 201612, end: 201709
  5. ERIVEDGE [Suspect]
     Active Substance: VISMODEGIB
     Route: 048
  6. METOCLOPRAMIDE [Suspect]
     Active Substance: METOCLOPRAMIDE
     Indication: Nausea
     Route: 065
     Dates: start: 201503
  7. MORPHINE [Suspect]
     Active Substance: MORPHINE
     Indication: Pain
     Route: 065
  8. TRAZODONE [Concomitant]
     Active Substance: TRAZODONE HYDROCHLORIDE
  9. OMEPRAZOLE [Concomitant]
     Active Substance: OMEPRAZOLE
  10. MIDAMOR [Concomitant]
     Active Substance: AMILORIDE HYDROCHLORIDE
  11. HYDROCHLOROTHIAZIDE [Concomitant]
     Active Substance: HYDROCHLOROTHIAZIDE
  12. ADVIL [Concomitant]
     Active Substance: IBUPROFEN
     Dosage: EXTRA STRENGTH
  13. NORTRIPTYLINE [Concomitant]
     Active Substance: NORTRIPTYLINE
  14. TYLENOL [Concomitant]
     Active Substance: ACETAMINOPHEN
     Dosage: EXTRA STRENGTH
  15. AMILORIDE [Concomitant]
     Active Substance: AMILORIDE
  16. TRAMADOL [Concomitant]
     Active Substance: TRAMADOL\TRAMADOL HYDROCHLORIDE
     Dosage: LONG ACTING
  17. CELEBREX [Concomitant]
     Active Substance: CELECOXIB
  18. GABAPENTIN [Concomitant]
     Active Substance: GABAPENTIN

REACTIONS (43)
  - Dehydration [Unknown]
  - Blood magnesium decreased [Not Recovered/Not Resolved]
  - Pancreatitis acute [Not Recovered/Not Resolved]
  - Cholelithiasis [Recovered/Resolved]
  - Pancreatic duct obstruction [Recovered/Resolved]
  - Pancreas infection [Not Recovered/Not Resolved]
  - Confusional state [Not Recovered/Not Resolved]
  - Muscle spasms [Not Recovered/Not Resolved]
  - Haemorrhage [Not Recovered/Not Resolved]
  - Bone cyst [Not Recovered/Not Resolved]
  - Neoplasm [Not Recovered/Not Resolved]
  - Muscle spasms [Not Recovered/Not Resolved]
  - Rib fracture [Unknown]
  - Blister [Not Recovered/Not Resolved]
  - Sensory loss [Not Recovered/Not Resolved]
  - Visual impairment [Not Recovered/Not Resolved]
  - Facial pain [Not Recovered/Not Resolved]
  - Vomiting [Not Recovered/Not Resolved]
  - Nausea [Unknown]
  - Back pain [Not Recovered/Not Resolved]
  - Abdominal distension [Not Recovered/Not Resolved]
  - Dehydration [Not Recovered/Not Resolved]
  - Telangiectasia [Not Recovered/Not Resolved]
  - Skin ulcer [Not Recovered/Not Resolved]
  - Entropion [Not Recovered/Not Resolved]
  - Anxiety [Not Recovered/Not Resolved]
  - Drug ineffective [Unknown]
  - Alopecia [Not Recovered/Not Resolved]
  - Stress [Not Recovered/Not Resolved]
  - Pain [Not Recovered/Not Resolved]
  - Malaise [Not Recovered/Not Resolved]
  - Swelling [Not Recovered/Not Resolved]
  - Anxiety [Not Recovered/Not Resolved]
  - Malaise [Not Recovered/Not Resolved]
  - Joint dislocation [Not Recovered/Not Resolved]
  - Insomnia [Unknown]
  - Ill-defined disorder [Not Recovered/Not Resolved]
  - Discomfort [Not Recovered/Not Resolved]
  - Fatigue [Unknown]
  - Basal cell carcinoma [Unknown]
  - Drug intolerance [Unknown]
  - Ill-defined disorder [Not Recovered/Not Resolved]
  - Drug abuse [Unknown]

NARRATIVE: CASE EVENT DATE: 20170101
